FAERS Safety Report 16208245 (Version 4)
Quarter: 2020Q3

REPORT INFORMATION
  Report Type: Spontaneous
  Country: US (occurrence: US)
  Receive Date: 20190417
  Receipt Date: 20200911
  Transmission Date: 20201102
  Serious: Yes (Other)
  Sender: FDA-Public Use
  Company Number: US-GILEAD-2019-0402553

PATIENT
  Age: 51 Year
  Sex: Female

DRUGS (3)
  1. DESCOVY [Concomitant]
     Active Substance: EMTRICITABINE\TENOFOVIR ALAFENAMIDE FUMARATE
  2. VIREAD [Suspect]
     Active Substance: TENOFOVIR DISOPROXIL FUMARATE
     Dosage: UNK
     Route: 065
     Dates: start: 2001, end: 2016
  3. VIREAD [Suspect]
     Active Substance: TENOFOVIR DISOPROXIL FUMARATE
     Indication: ACQUIRED IMMUNODEFICIENCY SYNDROME
     Dosage: UNK
     Route: 048
     Dates: start: 2007, end: 2016

REACTIONS (15)
  - Stress fracture [Unknown]
  - Osteoporosis [Not Recovered/Not Resolved]
  - Foot fracture [Not Recovered/Not Resolved]
  - Economic problem [Not Recovered/Not Resolved]
  - Chronic kidney disease [Unknown]
  - Renal failure [Unknown]
  - Pain [Not Recovered/Not Resolved]
  - Glomerular filtration rate decreased [Unknown]
  - Nephrolithiasis [Unknown]
  - Emotional distress [Not Recovered/Not Resolved]
  - Bone density decreased [Not Recovered/Not Resolved]
  - Anxiety [Not Recovered/Not Resolved]
  - Osteopenia [Not Recovered/Not Resolved]
  - Anhedonia [Not Recovered/Not Resolved]
  - Blood creatinine increased [Unknown]

NARRATIVE: CASE EVENT DATE: 20140815
